FAERS Safety Report 15113525 (Version 3)
Quarter: 2018Q4

REPORT INFORMATION
  Report Type: Spontaneous
  Country: FR (occurrence: FR)
  Receive Date: 20180706
  Receipt Date: 20181207
  Transmission Date: 20190204
  Serious: Yes (Other)
  Sender: FDA-Public Use
  Company Number: FR-009507513-1806FRA001388

PATIENT
  Age: 73 Year
  Sex: Male
  Weight: 80 kg

DRUGS (8)
  1. APROVEL [Interacting]
     Active Substance: IRBESARTAN
     Dosage: UNK
     Route: 065
  2. TENORETIC [Concomitant]
     Active Substance: ATENOLOL\CHLORTHALIDONE
     Indication: HYPERTENSION
     Dosage: 0.5 TABLET, IN THE MORNING
     Route: 048
     Dates: start: 2003
  3. ANALGESIC (UNSPECIFIED) [Concomitant]
     Active Substance: UNSPECIFIED INGREDIENT
     Dosage: UNK
  4. JANUMET [Suspect]
     Active Substance: METFORMIN HYDROCHLORIDE\SITAGLIPTIN PHOSPHATE
     Indication: TYPE 2 DIABETES MELLITUS
     Dosage: 2 DF, QD
     Route: 048
     Dates: start: 20180326, end: 20180528
  5. VESICARE [Concomitant]
     Active Substance: SOLIFENACIN SUCCINATE
     Dosage: 10 MG, DAILY
  6. ZYMAD [Concomitant]
     Active Substance: CHOLECALCIFEROL
     Dosage: 1 AMPOULE, EVERY 15 DAYS
  7. IRBESARTAN. [Concomitant]
     Active Substance: IRBESARTAN
     Indication: HYPERTENSION
     Dosage: 150 MG, QDUNK
     Dates: start: 2017
  8. INEXIUM (ESOMEPRAZOLE MAGNESIUM) [Concomitant]
     Active Substance: ESOMEPRAZOLE MAGNESIUM
     Indication: GASTROOESOPHAGEAL REFLUX DISEASE
     Dosage: 40 MG, IN THE MORNINGUNK UNK, UNK
     Route: 065
     Dates: start: 2003

REACTIONS (6)
  - Angioedema [Unknown]
  - Drug interaction [Unknown]
  - Polyarthritis [Unknown]
  - Tenoplasty [Unknown]
  - Shoulder arthroplasty [Unknown]
  - Seronegative arthritis [Unknown]

NARRATIVE: CASE EVENT DATE: 20180406
